FAERS Safety Report 15876737 (Version 1)
Quarter: 2019Q1

REPORT INFORMATION
  Report Type: Spontaneous
  Country: US (occurrence: US)
  Receive Date: 20190127
  Receipt Date: 20190127
  Transmission Date: 20190417
  Serious: No
  Sender: FDA-Public Use
  Company Number: US-BIOGEN-2019BI00688562

PATIENT
  Age: 31 Year
  Sex: Male

DRUGS (1)
  1. SPINRAZA [Suspect]
     Active Substance: NUSINERSEN
     Indication: SPINAL MUSCULAR ATROPHY
     Route: 065
     Dates: start: 20190118

REACTIONS (2)
  - Headache [Not Recovered/Not Resolved]
  - Traumatic lumbar puncture [Recovered/Resolved]

NARRATIVE: CASE EVENT DATE: 20190118
